FAERS Safety Report 23460008 (Version 3)
Quarter: 2024Q1

REPORT INFORMATION
  Report Type: Spontaneous
  Country: KR (occurrence: None)
  Receive Date: 20240131
  Receipt Date: 20240314
  Transmission Date: 20240410
  Serious: Yes (Other)
  Sender: FDA-Public Use
  Company Number: KR-ROCHE-3500655

PATIENT

DRUGS (1)
  1. PERJETA [Suspect]
     Active Substance: PERTUZUMAB
     Indication: Product used for unknown indication
     Dosage: 420 MG/14 ML
     Route: 042
     Dates: start: 20240119

REACTIONS (5)
  - Anaphylactic reaction [Unknown]
  - Ear pain [Unknown]
  - Cold sweat [Unknown]
  - Dyspnoea [Unknown]
  - Product quality issue [Unknown]
